FAERS Safety Report 15061925 (Version 1)
Quarter: 2018Q2

REPORT INFORMATION
  Report Type: Spontaneous
  Country: US (occurrence: US)
  Receive Date: 20180625
  Receipt Date: 20180625
  Transmission Date: 20180711
  Serious: Yes (Other)
  Sender: FDA-Public Use
  Company Number: US-PFIZER INC-2018253976

PATIENT
  Age: 61 Year
  Sex: Female

DRUGS (3)
  1. DOXORUBICIN HCL [Suspect]
     Active Substance: DOXORUBICIN HYDROCHLORIDE
     Indication: MYCOSIS FUNGOIDES
     Dosage: 40 MG/M2, MONTHLY (ONCE/MONTH)
  2. FLUOCINONIDE. [Concomitant]
     Active Substance: FLUOCINONIDE
     Indication: MYCOSIS FUNGOIDES
     Dosage: UNK, (EXTERNAL OINTMENT)
     Route: 061
  3. TRIAMCINOLONE [Concomitant]
     Active Substance: TRIAMCINOLONE
     Indication: MYCOSIS FUNGOIDES
     Dosage: UNK, (EXTERNAL OINTMENT)
     Route: 061

REACTIONS (4)
  - Condition aggravated [Unknown]
  - Cough [Unknown]
  - Dysphonia [Unknown]
  - Dermatitis exfoliative generalised [Not Recovered/Not Resolved]
